FAERS Safety Report 22037169 (Version 1)
Quarter: 2023Q1

REPORT INFORMATION
  Report Type: Report from Study
  Country: US (occurrence: US)
  Receive Date: 20230226
  Receipt Date: 20230226
  Transmission Date: 20230418
  Serious: Yes (Other)
  Sender: FDA-Public Use
  Company Number: US-UCBSA-2022064927

PATIENT
  Age: 48 Year
  Sex: Female

DRUGS (1)
  1. CERTOLIZUMAB PEGOL [Suspect]
     Active Substance: CERTOLIZUMAB PEGOL
     Indication: Rheumatoid arthritis
     Dosage: 400 MILLIGRAM, MONTHLY (QM)
     Route: 058
     Dates: start: 20220501

REACTIONS (5)
  - Migraine [Not Recovered/Not Resolved]
  - Exostosis [Not Recovered/Not Resolved]
  - Stress [Not Recovered/Not Resolved]
  - Tendonitis [Recovered/Resolved]
  - Therapeutic response shortened [Unknown]

NARRATIVE: CASE EVENT DATE: 20220601
